FAERS Safety Report 15658450 (Version 1)
Quarter: 2018Q4

REPORT INFORMATION
  Report Type: Report from Study
  Country: US (occurrence: US)
  Receive Date: 20181126
  Receipt Date: 20181126
  Transmission Date: 20190205
  Serious: Yes (Hospitalization)
  Sender: FDA-Public Use
  Company Number: US-SA-2018SA101220

PATIENT
  Age: 52 Year
  Sex: Female
  Weight: 147.85 kg

DRUGS (2)
  1. INSULIN GLARGINE [Suspect]
     Active Substance: INSULIN GLARGINE
     Indication: DIABETES MELLITUS
     Dosage: 50 IU,QD
     Route: 058
     Dates: start: 20150701
  2. PREDNISONE. [Suspect]
     Active Substance: PREDNISONE
     Dosage: UNK UNK,UNK
     Route: 065

REACTIONS (2)
  - Blood glucose increased [Recovered/Resolved]
  - Platelet count decreased [Recovered/Resolved]

NARRATIVE: CASE EVENT DATE: 20180209
